FAERS Safety Report 7727246-9 (Version None)
Quarter: 2011Q3

REPORT INFORMATION
  Report Type: 
  Country: None (occurrence: None)
  Receive Date: 20110902
  Receipt Date: 20110823
  Transmission Date: 20111222
  Serious: Yes (Death)
  Sender: FDA-Public Use
  Company Number: ES-JNJFOC-20110807772

PATIENT

DRUGS (3)
  1. RITONAVIR [Suspect]
     Indication: HIV INFECTION
     Dosage: 100 MG ONCE A DAY OR 100 MG TWICE A DAY
  2. DARUNAVIR HYDRATE [Suspect]
     Indication: HIV INFECTION
     Dosage: 800 MG ONCE A DAY OR 600 MG TWICE A DAY
     Route: 048
  3. ETRAVIRINE [Suspect]
     Indication: HIV INFECTION
     Dosage: 400 MG ONCE A DAY OR 200 MG TWICE A DAY
     Route: 048

REACTIONS (1)
  - OESOPHAGEAL CANCER METASTATIC [None]
